FAERS Safety Report 24425396 (Version 1)
Quarter: 2024Q4

REPORT INFORMATION
  Report Type: Report from Study
  Country: US (occurrence: US)
  Receive Date: 20241011
  Receipt Date: 20241011
  Transmission Date: 20250115
  Serious: Yes (Hospitalization)
  Sender: JOHNSON AND JOHNSON
  Company Number: US-JNJFOC-20241020917

PATIENT
  Age: 5 Decade
  Sex: Male

DRUGS (5)
  1. SPRAVATO [Suspect]
     Active Substance: ESKETAMINE
     Indication: Depression
     Dosage: ^^28 MG, 1 TOTAL DOSE^^
     Dates: start: 20230918, end: 20230918
  2. SPRAVATO [Suspect]
     Active Substance: ESKETAMINE
     Dosage: ^^42 MG, 1 TOTAL DOSE^^
     Dates: start: 20230922, end: 20230922
  3. SPRAVATO [Suspect]
     Active Substance: ESKETAMINE
     Dosage: ^^84 MG, 1 TOTAL DOSE^^
     Dates: start: 20230925, end: 20230925
  4. SPRAVATO [Suspect]
     Active Substance: ESKETAMINE
     Dosage: ^^70 MG, 1 TOTAL DOSE^^
     Dates: start: 20230929, end: 20230929
  5. SPRAVATO [Suspect]
     Active Substance: ESKETAMINE
     Dosage: ^^84 MG, 22 TOTAL DOSES^^
     Dates: start: 20231002, end: 20240923

REACTIONS (1)
  - Surgery [Unknown]
